FAERS Safety Report 8840730 (Version 2)
Quarter: 2015Q3

REPORT INFORMATION
  Report Type: Report from Study
  Country: US (occurrence: US)
  Receive Date: 20121015
  Receipt Date: 20150812
  Transmission Date: 20151125
  Serious: No
  Sender: FDA-Public Use
  Company Number: US-ROCHE-1122343

PATIENT
  Sex: Male

DRUGS (2)
  1. NUTROPIN [Suspect]
     Active Substance: SOMATROPIN
     Indication: DWARFISM
     Route: 065
  2. NUTROPIN [Suspect]
     Active Substance: SOMATROPIN
     Route: 065

REACTIONS (2)
  - Headache [Unknown]
  - Hypothalamo-pituitary disorder [Unknown]
